FAERS Safety Report 9440241 (Version 1)
Quarter: 2013Q3

REPORT INFORMATION
  Report Type: Report from Study
  Country: NL (occurrence: NL)
  Receive Date: 20130805
  Receipt Date: 20130805
  Transmission Date: 20140515
  Serious: Yes (Hospitalization)
  Sender: FDA-Public Use
  Company Number: PHHO2012NL015033

PATIENT
  Age: 44 Year
  Sex: Male
  Weight: 95 kg

DRUGS (7)
  1. PROGRAF [Suspect]
     Indication: RENAL TRANSPLANT
     Dosage: 4 MG
     Dates: start: 20101121
  2. MYFORTIC [Suspect]
     Indication: RENAL TRANSPLANT
     Dosage: 360 MG, BID
     Dates: start: 20101121
  3. PREDNISONE [Suspect]
     Indication: RENAL TRANSPLANT
     Dosage: 5 MG, QD
     Dates: start: 20101121
  4. ADALAT [Concomitant]
     Indication: BLOOD PRESSURE MANAGEMENT
     Dosage: 30 MG, QD
     Dates: start: 20100906
  5. TRAMADOL [Concomitant]
     Indication: PAIN MANAGEMENT
     Dosage: 50 MG, TID
     Dates: start: 20100905
  6. ALFACALCIDOL [Concomitant]
     Indication: KIDNEY TRANSPLANT REJECTION
     Dosage: 1 UG, QD
     Dates: start: 20100905
  7. CALCICHEW [Concomitant]
     Indication: PROPHYLAXIS
     Dosage: 500 MG, BID
     Dates: start: 20100905

REACTIONS (2)
  - Pulmonary embolism [Recovered/Resolved]
  - Deep vein thrombosis [Recovered/Resolved]
